FAERS Safety Report 21536994 (Version 2)
Quarter: 2022Q4

REPORT INFORMATION
  Report Type: Report from Study
  Country: ES (occurrence: ES)
  Receive Date: 20221101
  Receipt Date: 20221108
  Transmission Date: 20230113
  Serious: Yes (Other)
  Sender: FDA-Public Use
  Company Number: ES-BAYER-2022P010769

PATIENT
  Age: 38 Year
  Sex: Female

DRUGS (1)
  1. MIRENA [Suspect]
     Active Substance: LEVONORGESTREL
     Indication: Contraception
     Dosage: 20?G/DAY
     Route: 015
     Dates: start: 20220214, end: 20220502

REACTIONS (5)
  - Device breakage [None]
  - Abdominal discomfort [Recovered/Resolved]
  - Device expulsion [Recovered/Resolved]
  - Complication of device removal [None]
  - Device defective [None]

NARRATIVE: CASE EVENT DATE: 20220502
